FAERS Safety Report 4639324-1 (Version None)
Quarter: 2005Q2

REPORT INFORMATION
  Report Type: 
  Country: None (occurrence: None)
  Receive Date: 20050418
  Receipt Date: 20050404
  Transmission Date: 20051028
  Serious: Yes (Hospitalization, Other)
  Sender: FDA-Public Use
  Company Number: 2005BI001584

PATIENT
  Sex: Female
  Weight: 56.6996 kg

DRUGS (17)
  1. AVONEX [Suspect]
     Indication: MULTIPLE SCLEROSIS
     Dosage: 30 UG; QW; IM
     Route: 030
     Dates: start: 20040629, end: 20040701
  2. NATALIZUMAB [Suspect]
     Indication: MULTIPLE SCLEROSIS
     Dosage: 300 MG; QM; IV
     Route: 042
     Dates: start: 20050119
  3. SOLU-MEDROL [Concomitant]
  4. PLENDIL [Concomitant]
  5. CALTRATE WITH VITAMIN D [Concomitant]
  6. DIAZEPAM [Concomitant]
  7. ZANTAC [Concomitant]
  8. PROPOXYPHENE N ACETE [Concomitant]
  9. FOSAMAX [Concomitant]
  10. VITAMIN B-100 [Concomitant]
  11. VITAMIN E [Concomitant]
  12. FISH OIL [Concomitant]
  13. GLUCOSAMINE [Concomitant]
  14. POTASSIUM CHLORIDE [Concomitant]
  15. LECITHIN [Concomitant]
  16. THERAGRAN MULTIVITAMIN [Concomitant]
  17. ARICEPT [Concomitant]

REACTIONS (9)
  - CARDIAC DISORDER [None]
  - CORONARY ARTERY OCCLUSION [None]
  - DEPRESSION [None]
  - INFLUENZA [None]
  - INFLUENZA LIKE ILLNESS [None]
  - MIGRAINE [None]
  - MYOCARDIAL INFARCTION [None]
  - PALPITATIONS [None]
  - RESPIRATORY RATE INCREASED [None]
